FAERS Safety Report 15483764 (Version 2)
Quarter: 2019Q2

REPORT INFORMATION
  Report Type: Report from Study
  Country: IT (occurrence: IT)
  Receive Date: 20181010
  Receipt Date: 20190530
  Transmission Date: 20190711
  Serious: Yes (Hospitalization, Other)
  Sender: FDA-Public Use
  Company Number: IT-PFIZER INC-2018404643

PATIENT
  Age: 50 Year
  Sex: Female

DRUGS (2)
  1. ALCOVER [Interacting]
     Active Substance: SODIUM OXYBATE
     Indication: ALCOHOLISM
     Dosage: 10 DF, TOTAL
     Route: 048
     Dates: start: 20180827, end: 20180827
  2. TAVOR (LORAZEPAM) [Suspect]
     Active Substance: LORAZEPAM
     Indication: DEPRESSION
     Dosage: 7.5 MG, 1X/DAY
     Dates: start: 20180804, end: 20180827

REACTIONS (2)
  - Sopor [Recovered/Resolved]
  - Drug interaction [Unknown]

NARRATIVE: CASE EVENT DATE: 20180827
